FAERS Safety Report 14146045 (Version 1)
Quarter: 2017Q4

REPORT INFORMATION
  Report Type: Spontaneous
  Country: CA (occurrence: CA)
  Receive Date: 20171031
  Receipt Date: 20171031
  Transmission Date: 20180321
  Serious: Yes (Other)
  Sender: FDA-Public Use
  Company Number: CA-CELGENEUS-CAN-20171005527

PATIENT

DRUGS (1)
  1. OTEZLA [Suspect]
     Active Substance: APREMILAST
     Indication: PSORIASIS
     Route: 048

REACTIONS (25)
  - Diarrhoea [Unknown]
  - Abdominal pain [Unknown]
  - Decreased appetite [Unknown]
  - Frequent bowel movements [Unknown]
  - Nausea [Unknown]
  - Migraine [Unknown]
  - Back pain [Unknown]
  - Mood altered [Unknown]
  - Sleep disorder [Unknown]
  - Iritis [Unknown]
  - Upper respiratory tract infection [Unknown]
  - Nasopharyngitis [Unknown]
  - Depression [Unknown]
  - Swelling face [Unknown]
  - Pain in extremity [Unknown]
  - Gastrointestinal disorder [Unknown]
  - Dizziness [Unknown]
  - Fatigue [Unknown]
  - Flatulence [Unknown]
  - Weight decreased [Unknown]
  - Vision blurred [Unknown]
  - Arthralgia [Unknown]
  - Headache [Unknown]
  - Vomiting [Unknown]
  - Abdominal distension [Unknown]
